FAERS Safety Report 5385212-5 (Version None)
Quarter: 2007Q3

REPORT INFORMATION
  Report Type: 
  Country: None (occurrence: None)
  Receive Date: 20070712
  Receipt Date: 20070629
  Transmission Date: 20080115
  Serious: Yes (Other)
  Sender: FDA-Public Use
  Company Number: IE-ASTRAZENECA-2007GB00719

PATIENT
  Age: 57 Year
  Sex: Male

DRUGS (3)
  1. NEXIUM [Suspect]
     Indication: HELICOBACTER INFECTION
     Dosage: TOOK 3 DOSES
     Route: 048
  2. KLACID FORTE [Suspect]
     Indication: HELICOBACTER INFECTION
     Dosage: TOOK 3 DOSES
     Route: 065
  3. CLONAMOX [Suspect]
     Indication: HELICOBACTER INFECTION
     Dosage: TOOK 3 DOSES
     Route: 048

REACTIONS (6)
  - ABDOMINAL PAIN UPPER [None]
  - DIARRHOEA [None]
  - HEADACHE [None]
  - IMPAIRED WORK ABILITY [None]
  - NAUSEA [None]
  - PHARYNGOLARYNGEAL PAIN [None]
